FAERS Safety Report 24741314 (Version 3)
Quarter: 2025Q3

REPORT INFORMATION
  Report Type: Spontaneous
  Country: EU (occurrence: EU)
  Receive Date: 20241217
  Receipt Date: 20250825
  Transmission Date: 20251020
  Serious: Yes (Hospitalization)
  Sender: BEIGENE
  Company Number: EU-BEIGENE-BGN-2024-020277

PATIENT
  Age: 76 Year

DRUGS (2)
  1. BRUKINSA [Suspect]
     Active Substance: ZANUBRUTINIB
     Indication: Waldenstrom^s macroglobulinaemia
  2. BRUKINSA [Suspect]
     Active Substance: ZANUBRUTINIB

REACTIONS (4)
  - Genital haemorrhage [Recovered/Resolved]
  - Immunisation reaction [Recovered/Resolved]
  - Contusion [Unknown]
  - Vaginal haemorrhage [Unknown]
